FAERS Safety Report 9846753 (Version 2)
Quarter: 2014Q1

REPORT INFORMATION
  Report Type: Spontaneous
  Country: US (occurrence: US)
  Receive Date: 20140127
  Receipt Date: 20140127
  Transmission Date: 20141002
  Serious: No
  Sender: FDA-Public Use
  Company Number: US-GILEAD-2011-0047283

PATIENT
  Age: 32 Year
  Sex: Female
  Weight: 71.2 kg

DRUGS (1)
  1. COMPLERA [Suspect]
     Indication: HIV INFECTION
     Dosage: UNK
     Route: 048
     Dates: start: 20111031, end: 20111101

REACTIONS (1)
  - Rash maculo-papular [Recovered/Resolved]
